FAERS Safety Report 8840246 (Version 1)
Quarter: 2012Q4

REPORT INFORMATION
  Report Type: 
  Country: CA (occurrence: CA)
  Receive Date: 20121015
  Receipt Date: 20121015
  Transmission Date: 20130627
  Serious: Yes (Death)
  Sender: FDA-Public Use
  Company Number: CA-GLAXOSMITHKLINE-A0996325A

PATIENT
  Age: 63 Year
  Sex: Male

DRUGS (4)
  1. VOTRIENT [Suspect]
     Indication: RENAL CANCER METASTATIC
     Dosage: 800MG Per day
     Route: 048
     Dates: start: 20120808
  2. RAMIPRIL [Concomitant]
  3. LASIX [Concomitant]
     Dosage: 20MG Per day
  4. ZYLOPRIM [Concomitant]

REACTIONS (2)
  - Death [Fatal]
  - Dyspnoea [Recovered/Resolved]
